FAERS Safety Report 18045449 (Version 1)
Quarter: 2020Q3

REPORT INFORMATION
  Report Type: Spontaneous
  Country: US (occurrence: US)
  Receive Date: 20200720
  Receipt Date: 20200720
  Transmission Date: 20201103
  Serious: No
  Sender: FDA-Public Use
  Company Number: US-ASTRAZENECA-2020SE90359

PATIENT
  Age: 92 Year

DRUGS (3)
  1. PRILOSEC OTC [Suspect]
     Active Substance: OMEPRAZOLE MAGNESIUM
     Dosage: JUST SWITCHED BACK, DAILY
     Route: 048
     Dates: start: 202006
  2. PRILOSEC OTC [Suspect]
     Active Substance: OMEPRAZOLE MAGNESIUM
     Dosage: DAILY FOR YEARS,EVERY DAY
     Route: 048
  3. ALIGN [Concomitant]
     Active Substance: BIFIDOBACTERIUM LONGUM SUBSP. INFANTIS
     Route: 048

REACTIONS (5)
  - Incorrect product administration duration [Unknown]
  - Diarrhoea [Unknown]
  - Gastric disorder [Unknown]
  - Intentional product misuse [Unknown]
  - Flatulence [Unknown]
